FAERS Safety Report 15517725 (Version 1)
Quarter: 2018Q4

REPORT INFORMATION
  Report Type: Spontaneous
  Country: GB (occurrence: GB)
  Receive Date: 20181017
  Receipt Date: 20181017
  Transmission Date: 20190205
  Serious: Yes (Other)
  Sender: FDA-Public Use
  Company Number: GB-ASTRAZENECA-2018SF32827

PATIENT
  Age: 29 Year
  Sex: Female

DRUGS (9)
  1. ARIPIPRAZOLE. [Suspect]
     Active Substance: ARIPIPRAZOLE
     Indication: PRODUCT USED FOR UNKNOWN INDICATION
     Dosage: 5 MG, UNK5.0MG UNKNOWN
     Route: 065
     Dates: start: 201605
  2. QUETIAPINE. [Suspect]
     Active Substance: QUETIAPINE
     Dosage: UNK
     Route: 048
     Dates: start: 201809
  3. DIAZEPAM. [Concomitant]
     Active Substance: DIAZEPAM
     Indication: PRODUCT USED FOR UNKNOWN INDICATION
     Dosage: UNK
  4. QUETIAPINE. [Suspect]
     Active Substance: QUETIAPINE
     Indication: PRODUCT USED FOR UNKNOWN INDICATION
     Dosage: 700 MG, PM
     Route: 048
     Dates: start: 201606
  5. RISPERIDONE. [Suspect]
     Active Substance: RISPERIDONE
     Dosage: 1 MG AM AND 2 MG NOCTE FOR 5-7 DAYS
     Route: 065
  6. ARIPIPRAZOLE. [Suspect]
     Active Substance: ARIPIPRAZOLE
     Dosage: 10 MG, QD
     Route: 065
     Dates: start: 201606
  7. OLANZAPINE. [Suspect]
     Active Substance: OLANZAPINE
     Indication: PRODUCT USED FOR UNKNOWN INDICATION
     Dosage: UNK
     Route: 065
     Dates: start: 201711
  8. QUETIAPINE FUMARATE. [Suspect]
     Active Substance: QUETIAPINE FUMARATE
     Dosage: UNK
     Route: 048
     Dates: start: 201711
  9. RISPERIDONE. [Suspect]
     Active Substance: RISPERIDONE
     Indication: PRODUCT USED FOR UNKNOWN INDICATION
     Dosage: 4 MG, PM FOR 7 DAYS
     Route: 065
     Dates: start: 201808

REACTIONS (8)
  - Agitation [Unknown]
  - Malaise [Unknown]
  - Psychotic disorder [Unknown]
  - Akathisia [Unknown]
  - Drug intolerance [Unknown]
  - Dizziness [Unknown]
  - Suicidal ideation [Unknown]
  - Restlessness [Unknown]

NARRATIVE: CASE EVENT DATE: 201606
